FAERS Safety Report 8540206-3 (Version None)
Quarter: 2012Q3

REPORT INFORMATION
  Report Type: 
  Country: None (occurrence: None)
  Receive Date: 20120713
  Receipt Date: 20120703
  Transmission Date: 20120928
  Serious: Yes (Life-Threatening)
  Sender: FDA-Public Use
  Company Number: TCI2012A03451

PATIENT
  Age: 59 Year
  Sex: Female

DRUGS (13)
  1. ZOMIG [Concomitant]
  2. LASIX [Concomitant]
  3. LANSOPRAZOLE [Suspect]
     Indication: GASTROOESOPHAGEAL REFLUX DISEASE
     Dosage: 30 MG (30 MG, 1 IN 1 D) PER ORAL 15 MG (15 MG, 1 IN 1 D) PER ORAL PER ORAL
     Route: 048
     Dates: start: 20111111, end: 20120105
  4. LANSOPRAZOLE [Suspect]
     Indication: GASTROOESOPHAGEAL REFLUX DISEASE
     Dosage: 30 MG (30 MG, 1 IN 1 D) PER ORAL 15 MG (15 MG, 1 IN 1 D) PER ORAL PER ORAL
     Route: 048
     Dates: start: 20120106
  5. SEPAZON (CLOXAZOLAM) [Concomitant]
  6. ZOLPIDEM TARTRATE [Concomitant]
  7. TSUMURA RIKKUNSHI-TO (HERBAL PREPARATION) [Concomitant]
  8. ZETIA [Concomitant]
  9. LENDORMIN D (BROTIZOLAM) [Concomitant]
  10. DOGMATYL (SULPIRIDE) [Concomitant]
  11. AMOXAPINE [Concomitant]
  12. MIRTAZAPINE [Concomitant]
  13. DORSAL (QUAZEPAM) [Concomitant]

REACTIONS (5)
  - WEIGHT INCREASED [None]
  - COLITIS MICROSCOPIC [None]
  - DIARRHOEA [None]
  - HYPOPROTEINAEMIA [None]
  - OEDEMA PERIPHERAL [None]
